FAERS Safety Report 9547016 (Version 2)
Quarter: 2013Q3

REPORT INFORMATION
  Report Type: Spontaneous
  Country: US (occurrence: CH)
  Receive Date: 20130924
  Receipt Date: 20130930
  Transmission Date: 20140515
  Serious: No
  Sender: FDA-Public Use
  Company Number: CH-009507513-1309CHE009218

PATIENT
  Age: 74 Year
  Sex: Female

DRUGS (2)
  1. SINEMET [Suspect]
     Indication: PARKINSON^S DISEASE
     Dosage: UNK
     Route: 048
     Dates: start: 20130831
  2. DUOTRAV [Concomitant]
     Indication: OPEN ANGLE GLAUCOMA
     Dosage: STRENGTH: 40MICROGRAM PER 5 MILLIGRAM PER MILLILITER: ROUTE: OCULAR
     Route: 047

REACTIONS (3)
  - Glaucoma [Unknown]
  - Diarrhoea [Recovered/Resolved]
  - Visual acuity reduced [Unknown]
